FAERS Safety Report 8309702-8 (Version None)
Quarter: 2012Q2

REPORT INFORMATION
  Report Type: 
  Country: None (occurrence: None)
  Receive Date: 20120423
  Receipt Date: 20120411
  Transmission Date: 20120825
  Serious: Yes (Hospitalization)
  Sender: FDA-Public Use
  Company Number: AUR-APL-2012-01798

PATIENT
  Age: 76 Year
  Sex: Female
  Weight: 55 kg

DRUGS (8)
  1. FUROSEMIDE [Concomitant]
  2. RAMIPRIL [Suspect]
     Indication: PRODUCT USED FOR UNKNOWN INDICATION
     Dosage: 2.5 MG (2.5 MG,1 IN 1 D),ORAL
     Route: 048
     Dates: end: 20120305
  3. SIMVASTATIN [Suspect]
     Indication: PRODUCT USED FOR UNKNOWN INDICATION
     Dosage: 20 MG (20 MG,1 IN 1 D),ORAL
     Route: 048
     Dates: end: 20120305
  4. ASPIRIN [Concomitant]
  5. LANSOPRAZOLE [Concomitant]
  6. SPIRIVA [Concomitant]
  7. CIPROFLOXACIN [Suspect]
     Indication: LIVER ABSCESS
     Dosage: 1500 MG (750 MG, 2 IN 1 D),ORAL
     Route: 048
     Dates: start: 20120216, end: 20120305
  8. FLUTICASONE PROPIONATE/SALMETEROL [Concomitant]

REACTIONS (2)
  - RENAL FAILURE ACUTE [None]
  - DEHYDRATION [None]
